FAERS Safety Report 8648426 (Version 4)
Quarter: 2012Q4

REPORT INFORMATION
  Report Type: 
  Country: DE (occurrence: JP)
  Receive Date: 20120703
  Receipt Date: 20120921
  Transmission Date: 20130627
  Serious: Yes (Other)
  Sender: FDA-Public Use
  Company Number: JP-FRI-1000036829

PATIENT
  Age: 82 Year
  Sex: Male

DRUGS (6)
  1. MEMANTINE [Suspect]
     Indication: DEMENTIA ALZHEIMER^S TYPE
     Dosage: 5 mg
     Route: 048
     Dates: start: 20120611, end: 20120618
  2. CONTOMIN [Suspect]
     Indication: SCHIZOPHRENIA
     Dosage: 50 mg
     Route: 048
     Dates: start: 20120604, end: 20120610
  3. WARFARIN [Concomitant]
     Indication: ATRIAL FIBRILLATION
     Dosage: 2 mg
     Route: 048
     Dates: start: 20110514
  4. TAKEPRON OD [Concomitant]
     Indication: PANCREATIC CARCINOMA
     Dosage: 15 mg
     Route: 048
     Dates: start: 20110514
  5. LASIX [Concomitant]
     Indication: PANCREATIC CARCINOMA
     Dosage: 20 mg
     Route: 048
     Dates: start: 20110514
  6. ALDACTONE A [Concomitant]
     Indication: PANCREATIC CARCINOMA
     Dosage: 25 mg
     Route: 048
     Dates: start: 20110514

REACTIONS (1)
  - Jaundice [Recovered/Resolved]
